FAERS Safety Report 5636592-4 (Version None)
Quarter: 2008Q1

REPORT INFORMATION
  Report Type: 
  Country: None (occurrence: None)
  Receive Date: 20080225
  Receipt Date: 20080225
  Transmission Date: 20080703
  Serious: Yes (Hospitalization)
  Sender: FDA-Public Use
  Company Number: PHHO1995NL02896

PATIENT
  Age: 49 Year
  Sex: Female
  Weight: 122 kg

DRUGS (7)
  1. SDZ HTF 919  VS. PLACEBO [Suspect]
     Indication: GASTROINTESTINAL DISORDER
     Route: 048
     Dates: start: 19950428, end: 19950503
  2. SIBELIUM [Concomitant]
     Indication: DEPRESSION
     Route: 048
     Dates: start: 19920501
  3. ROSEC [Concomitant]
     Indication: GASTROINTESTINAL DISORDER
     Route: 048
     Dates: start: 19920501
  4. ULCOGANT [Concomitant]
     Indication: GASTROINTESTINAL DISORDER
     Route: 048
     Dates: start: 19920501
  5. METAMUCIL [Concomitant]
     Route: 048
     Dates: start: 19921001
  6. SERESTA [Concomitant]
     Indication: ACUTE STRESS DISORDER
     Route: 048
     Dates: start: 19920501
  7. NORMISON [Concomitant]
     Indication: SLEEP DISORDER
     Route: 048
     Dates: start: 19920501

REACTIONS (4)
  - ABDOMINAL DISTENSION [None]
  - ABDOMINAL PAIN [None]
  - CONSTIPATION [None]
  - DIZZINESS [None]
